FAERS Safety Report 6926241-7 (Version None)
Quarter: 2010Q3

REPORT INFORMATION
  Report Type: 
  Country: None (occurrence: None)
  Receive Date: 20100816
  Receipt Date: 20100806
  Transmission Date: 20110219
  Serious: Yes (Other)
  Sender: FDA-Public Use
  Company Number: JP-PFIZER INC-2010099339

PATIENT

DRUGS (1)
  1. DOXAZOSIN MESYLATE [Suspect]
     Dosage: UNK
     Route: 048

REACTIONS (2)
  - BLOOD COUNT ABNORMAL [None]
  - HAEMOGLOBIN DECREASED [None]
